FAERS Safety Report 8125110-7 (Version None)
Quarter: 2012Q1

REPORT INFORMATION
  Report Type: 
  Country: None (occurrence: None)
  Receive Date: 20120209
  Receipt Date: 20120126
  Transmission Date: 20120608
  Serious: Yes (Death)
  Sender: FDA-Public Use
  Company Number: DE-ROCHE-1026797

PATIENT
  Sex: Male

DRUGS (4)
  1. LUCENTIS [Suspect]
     Indication: PRODUCT USED FOR UNKNOWN INDICATION
     Route: 050
     Dates: start: 20111118
  2. ACETYLSALICYLIC ACID SRT [Concomitant]
     Dosage: DRUG NAME ASS
  3. SIMVASTATIN [Concomitant]
  4. SOTALOL HCL [Concomitant]

REACTIONS (1)
  - MYOCARDIAL INFARCTION [None]
